FAERS Safety Report 5586459-5 (Version None)
Quarter: 2008Q1

REPORT INFORMATION
  Report Type: 
  Country: None (occurrence: None)
  Receive Date: 20080110
  Receipt Date: 20071228
  Transmission Date: 20080703
  Serious: Yes (Hospitalization, Disabling)
  Sender: FDA-Public Use
  Company Number: JP-AMGEN-US255715

PATIENT
  Sex: Female

DRUGS (3)
  1. ENBREL [Suspect]
     Indication: RHEUMATOID ARTHRITIS
     Route: 058
     Dates: start: 20070701, end: 20071101
  2. HYPEN [Concomitant]
     Dosage: UNSPECIFIED
     Route: 048
  3. ARAVA [Concomitant]
     Dosage: UNSPECIFIED
     Route: 048
     Dates: start: 20070801

REACTIONS (1)
  - NEPHRITIS INTERSTITIAL [None]
